FAERS Safety Report 7643367-3 (Version None)
Quarter: 2011Q3

REPORT INFORMATION
  Report Type: 
  Country: None (occurrence: None)
  Receive Date: 20110729
  Receipt Date: 20091130
  Transmission Date: 20111222
  Serious: No
  Sender: FDA-Public Use
  Company Number: 2009BI039080

PATIENT
  Sex: Female

DRUGS (1)
  1. TYSABRI [Suspect]
     Indication: MULTIPLE SCLEROSIS
     Route: 042
     Dates: start: 20070816

REACTIONS (4)
  - CELLULITIS [None]
  - NAIL BED INFECTION FUNGAL [None]
  - DRY SKIN [None]
  - GAIT DISTURBANCE [None]
